FAERS Safety Report 10252515 (Version 2)
Quarter: 2014Q2

REPORT INFORMATION
  Report Type: Spontaneous
  Country: IT (occurrence: IT)
  Receive Date: 20140623
  Receipt Date: 20140625
  Transmission Date: 20141212
  Serious: Yes (Life-Threatening)
  Sender: FDA-Public Use
  Company Number: IT-TEVA-488626ISR

PATIENT
  Age: 66 Year
  Sex: Female

DRUGS (9)
  1. ROCURONIUM BROMIDE [Suspect]
     Indication: GENERAL ANAESTHESIA
     Route: 042
     Dates: start: 20140530
  2. MIDAZOLAM IBI - ISTITUTO BIOCHIMICO ITALIANO GIOVANNI LORENZINI S.P.A. [Suspect]
     Indication: GENERAL ANAESTHESIA
     Route: 042
     Dates: start: 20140530
  3. FENTANEST - 0,1 MG/2 ML SOLUZIONE INIETTABILE - PFIZER ITALIA S.R.L. [Suspect]
     Indication: GENERAL ANAESTHESIA
     Route: 042
     Dates: start: 20140530
  4. PROPOFOL KABI - FRESENIUS KABI ITALIA S.R.L. [Suspect]
     Indication: GENERAL ANAESTHESIA
     Route: 042
     Dates: start: 20140530
  5. UNASYN - PFIZER LIMITED [Suspect]
     Indication: PRODUCT USED FOR UNKNOWN INDICATION
     Route: 042
     Dates: start: 20140530
  6. RANITIDINA ANGENERICO - ANGENERICO S.P.A. [Suspect]
     Indication: PRODUCT USED FOR UNKNOWN INDICATION
     Route: 042
     Dates: start: 20140530
  7. DISUFEN - ANGENERICO S.P.A. [Suspect]
     Indication: EPIDURAL ANALGESIA
     Dates: start: 20140530
  8. ROPIVACAINA KABI - FRESENIUS KABI ITALIA S.R.L. [Suspect]
     Indication: EPIDURAL ANALGESIA
  9. SUPRANE - BAXTER S.P.A. [Suspect]
     Indication: PRODUCT USED FOR UNKNOWN INDICATION

REACTIONS (1)
  - Angioedema [Recovered/Resolved]
